FAERS Safety Report 12618140 (Version 1)
Quarter: 2016Q3

REPORT INFORMATION
  Report Type: Spontaneous
  Country: None (occurrence: None)
  Receive Date: 20160802
  Receipt Date: 20160802
  Transmission Date: 20161109
  Serious: Yes (Hospitalization)
  Sender: FDA-Public Use
  Company Number: None

PATIENT
  Age: 17 Year
  Weight: 97.52 kg

DRUGS (2)
  1. VITAMIN E [Concomitant]
     Active Substance: .ALPHA.-TOCOPHEROL
  2. AZITHROMYCIN, 200 MG TEVA [Suspect]
     Active Substance: AZITHROMYCIN ANHYDROUS
     Indication: BACTERIAL INFECTION
     Route: 048

REACTIONS (5)
  - Swelling [None]
  - Rash [None]
  - Agitation [None]
  - Aggression [None]
  - Hallucination [None]

NARRATIVE: CASE EVENT DATE: 20160722
